FAERS Safety Report 16908481 (Version 3)
Quarter: 2019Q4

REPORT INFORMATION
  Report Type: Spontaneous
  Country: US (occurrence: US)
  Receive Date: 20191011
  Receipt Date: 20191203
  Transmission Date: 20200122
  Serious: Yes (Hospitalization, Other)
  Sender: FDA-Public Use
  Company Number: US-PFIZER INC-2019435635

PATIENT
  Age: 32 Year
  Sex: Male
  Weight: 77 kg

DRUGS (21)
  1. DIVALPROEX [Concomitant]
     Active Substance: DIVALPROEX SODIUM
     Indication: PARTIAL SEIZURES
     Dosage: 250 MG, 2X/DAY
     Route: 048
  2. PREDNISONE. [Concomitant]
     Active Substance: PREDNISONE
     Dosage: UNK [THEY GAVE HIM A STEROID BY IV WHILE IN THE HOSPITAL]
     Route: 042
  3. CLARITHROMYCIN. [Concomitant]
     Active Substance: CLARITHROMYCIN
     Indication: MYCOBACTERIAL INFECTION
     Dosage: 500 MG, 2X/DAY
     Dates: end: 201908
  4. OMEPRAZOLE. [Concomitant]
     Active Substance: OMEPRAZOLE
     Indication: ANTACID THERAPY
     Dosage: 40 MG, 2X/DAY
     Route: 048
  5. VALACYCLOVIR [Concomitant]
     Active Substance: VALACYCLOVIR HYDROCHLORIDE
     Indication: ANTIVIRAL TREATMENT
     Dosage: 500 MG, 1X/DAY (GAVE HIM AN IV FORM WHILE IN THE HOSPITAL)
     Route: 042
  6. RIFABUTIN. [Concomitant]
     Active Substance: RIFABUTIN
     Indication: MYCOBACTERIAL INFECTION
     Dosage: 150 MG, 2X/DAY
     Dates: end: 201908
  7. SIROLIMUS. [Concomitant]
     Active Substance: SIROLIMUS
     Indication: AUTOIMMUNE DISORDER
     Dosage: 1 MG, 1X/DAY
     Dates: end: 201908
  8. NOXAFIL [Concomitant]
     Active Substance: POSACONAZOLE
     Indication: FUNGAL INFECTION
     Dosage: 300 MG, 1X/DAY [3 TABLETS AT NIGHT]
     Dates: end: 201908
  9. PREDNISONE. [Concomitant]
     Active Substance: PREDNISONE
     Dosage: 60 MG, UNK [60 MG THE NEXT DAY BY MOUTH]
     Route: 048
  10. ARIPIPRAZOLE. [Concomitant]
     Active Substance: ARIPIPRAZOLE
     Indication: DEPRESSION
     Dosage: 5 MG, 1X/DAY
     Dates: end: 201908
  11. FLONASE [Concomitant]
     Active Substance: FLUTICASONE PROPIONATE
     Indication: HYPERSENSITIVITY
     Dosage: 1 DF, 1X/DAY [1 SPRAY EACH NOSTRIL ONCE DAILY]
     Route: 045
     Dates: end: 201908
  12. FLUOXETINE [Concomitant]
     Active Substance: FLUOXETINE HYDROCHLORIDE
     Indication: DEPRESSION
     Dosage: 40 MG, 1X/DAY (20MG CAPSULE, 2 CAPSULES ONCE DAILY)
     Dates: end: 201908
  13. FENTANYL TRANSDERMAL SYSTEM [Concomitant]
     Active Substance: FENTANYL
     Indication: PAIN
     Dosage: 25 UG, UNK (25MCG TOPICAL PATCH, CHANGED EVERY 72 HOURS)
     Route: 061
  14. RAPAMUNE [Suspect]
     Active Substance: SIROLIMUS
     Indication: AUTOIMMUNE DISORDER
     Dosage: 1 MG, 1X/DAY
     Route: 048
     Dates: end: 201908
  15. OXYCODONE HYDROCHLORIDE. [Concomitant]
     Active Substance: OXYCODONE HYDROCHLORIDE
     Indication: PAIN
     Dosage: 1 ML, AS NEEDED (20MG/ML, 1ML AS NEEDED BY MOUTH EVERY 4 HOURS)
     Route: 048
     Dates: end: 201908
  16. ETHAMBUTOL [Concomitant]
     Active Substance: ETHAMBUTOL HYDROCHLORIDE
     Indication: MYCOBACTERIAL INFECTION
     Dosage: 400 MG, 2X/DAY
     Dates: end: 201908
  17. CYCLOSPORINE. [Concomitant]
     Active Substance: CYCLOSPORINE
     Indication: STOMATITIS
     Dosage: 1 ML, AS NEEDED
     Dates: end: 201908
  18. IVIG [Concomitant]
     Active Substance: HUMAN IMMUNOGLOBULIN G
     Indication: IMMUNOGLOBULINS DECREASED
     Dosage: UNK, MONTHLY (IV INFUSION ONCE A MONTH)
     Route: 042
  19. BACTRIM [Concomitant]
     Active Substance: SULFAMETHOXAZOLE\TRIMETHOPRIM
     Indication: ANTIBIOTIC THERAPY
     Dosage: 20 ML, UNK [200/40 MG PER 5ML SUSPENSION, TAKES 20ML MON/WED/FRI]
     Dates: end: 201908
  20. CETIRIZINE [Concomitant]
     Active Substance: CETIRIZINE HYDROCHLORIDE
     Indication: HYPERSENSITIVITY
     Dosage: 10 MG, 1X/DAY
     Dates: end: 201908
  21. PREDNISONE. [Concomitant]
     Active Substance: PREDNISONE
     Indication: GRAFT VERSUS HOST DISEASE
     Dosage: 10 MG, UNK [10MG ONE DAY]
     Route: 048

REACTIONS (5)
  - Pneumonia [Unknown]
  - Product use in unapproved indication [Unknown]
  - Infection [Unknown]
  - Oesophageal rupture [Recovered/Resolved]
  - Off label use [Unknown]

NARRATIVE: CASE EVENT DATE: 20190825
